FAERS Safety Report 9103082 (Version 1)
Quarter: 2013Q1

REPORT INFORMATION
  Report Type: Spontaneous
  Country: FR (occurrence: FR)
  Receive Date: 20130218
  Receipt Date: 20130218
  Transmission Date: 20140127
  Serious: Yes (Hospitalization, Other)
  Sender: FDA-Public Use
  Company Number: FR-ELI_LILLY_AND_COMPANY-FR201302000753

PATIENT
  Age: 25 Year
  Sex: Female

DRUGS (4)
  1. ZYPREXA [Suspect]
     Indication: MAJOR DEPRESSION
     Dosage: 1 DF, EACH MORNING
  2. ZYPREXA [Suspect]
     Dosage: 1 DF, EACH EVENING
  3. SERESTA [Concomitant]
     Indication: MAJOR DEPRESSION
     Dosage: 1 DF, QD
  4. EFFEXOR [Concomitant]
     Indication: MAJOR DEPRESSION
     Dosage: 2 DF, QD

REACTIONS (9)
  - Pre-eclampsia [Unknown]
  - Gestational diabetes [Unknown]
  - Ascites [Unknown]
  - Headache [Unknown]
  - Dyspnoea [Unknown]
  - Oedema [Unknown]
  - Weight increased [Unknown]
  - Exposure during pregnancy [Unknown]
  - Off label use [Unknown]
